FAERS Safety Report 19622469 (Version 1)
Quarter: 2021Q3

REPORT INFORMATION
  Report Type: Spontaneous
  Country: CA (occurrence: CA)
  Receive Date: 20210728
  Receipt Date: 20210728
  Transmission Date: 20211014
  Serious: Yes (Life-Threatening, Other)
  Sender: FDA-Public Use
  Company Number: CA-ACCORD-233086

PATIENT
  Age: 15 Year
  Sex: Male
  Weight: 65 kg

DRUGS (41)
  1. ANTITHYMOCYTE IMMUNOGLOBULIN [Suspect]
     Active Substance: THYMOCYTE IMMUNE GLOBULIN NOS
     Indication: BONE MARROW TRANSPLANT
     Dosage: 1 EVERY 24 HOURS
     Route: 042
  2. EPINEPHRINE. [Concomitant]
     Active Substance: EPINEPHRINE
  3. FAMCICLOVIR. [Concomitant]
     Active Substance: FAMCICLOVIR
  4. LORAZEPAM. [Concomitant]
     Active Substance: LORAZEPAM
  5. ZINC. [Concomitant]
     Active Substance: ZINC
  6. BETAMETHASONE. [Concomitant]
     Active Substance: BETAMETHASONE
  7. FLUCONAZOLE. [Concomitant]
     Active Substance: FLUCONAZOLE
  8. OLANZAPINE. [Concomitant]
     Active Substance: OLANZAPINE
  9. ONDANSETRON [Concomitant]
     Active Substance: ONDANSETRON
  10. URSODEOXYCHOLIC ACID [Concomitant]
     Active Substance: URSODIOL
  11. METHOTREXATE. [Suspect]
     Active Substance: METHOTREXATE
     Indication: BONE MARROW TRANSPLANT
     Route: 042
  12. HYDROCORTISONE. [Concomitant]
     Active Substance: HYDROCORTISONE
  13. METHYLPREDNISOLONE. [Concomitant]
     Active Substance: METHYLPREDNISOLONE
  14. CICLOSPORIN [Suspect]
     Active Substance: CYCLOSPORINE
     Indication: BONE MARROW TRANSPLANT
     Route: 042
  15. AMLODIPINE [Concomitant]
     Active Substance: AMLODIPINE BESYLATE
  16. ATROPINE. [Concomitant]
     Active Substance: ATROPINE
  17. COLECALCIFEROL [Concomitant]
     Active Substance: CHOLECALCIFEROL
  18. FUROSEMIDE. [Concomitant]
     Active Substance: FUROSEMIDE
  19. LIDOCAINE. [Concomitant]
     Active Substance: LIDOCAINE
  20. PENTAMIDINE [Concomitant]
     Active Substance: PENTAMIDINE
  21. MESNA. [Concomitant]
     Active Substance: MESNA
  22. METOCLOPRAMIDE. [Concomitant]
     Active Substance: METOCLOPRAMIDE
  23. PREDNISONE. [Concomitant]
     Active Substance: PREDNISONE
  24. CETIRIZINE [Concomitant]
     Active Substance: CETIRIZINE HYDROCHLORIDE
  25. DIPHENHYDRAMINE. [Concomitant]
     Active Substance: DIPHENHYDRAMINE
  26. FOSCAVIR [Concomitant]
     Active Substance: FOSCARNET SODIUM
     Dosage: INJECTION?LIQ IV 24MG/ML
  27. HEPARIN [Concomitant]
     Active Substance: HEPARIN SODIUM
  28. RANITIDINE. [Concomitant]
     Active Substance: RANITIDINE
  29. CYCLOPHOSPHAMIDE/CYCLOPHOSPHAMIDE MONOHYDRATE [Suspect]
     Active Substance: CYCLOPHOSPHAMIDE
     Indication: BONE MARROW TRANSPLANT
     Route: 042
  30. AMITRIPTYLINE [Concomitant]
     Active Substance: AMITRIPTYLINE
  31. CALCIUM/COLECALCIFEROL [Concomitant]
     Active Substance: CALCIUM\CHOLECALCIFEROL
  32. CEFTAZIDIME/CEFTAZIDIME PENTAHYDRATE [Concomitant]
     Active Substance: CEFTAZIDIME
     Dosage: POWDER FOR SOLUTION
  33. MAGNESIUM HYDROXIDE. [Concomitant]
     Active Substance: MAGNESIUM HYDROXIDE
  34. MACROGOL [Concomitant]
     Active Substance: POLYETHYLENE GLYCOLS
  35. POTASSIUM [Concomitant]
     Active Substance: POTASSIUM
  36. VANCOMYCIN [Concomitant]
     Active Substance: VANCOMYCIN
  37. CICLOSPORIN [Suspect]
     Active Substance: CYCLOSPORINE
     Indication: BONE MARROW TRANSPLANT
     Dosage: 1 EVERY 1 DAYS
     Route: 048
  38. CHLORHEXIDINE [Concomitant]
     Active Substance: CHLORHEXIDINE
  39. DIMENHYDRINATE. [Concomitant]
     Active Substance: DIMENHYDRINATE
     Dosage: LIQUID INTRAVENOUS
  40. MUPIROCIN/MUPIROCIN CALCIUM [Concomitant]
     Active Substance: MUPIROCIN\MUPIROCIN CALCIUM
     Dosage: OINTMENT TOPICAL
  41. NYSTATIN. [Concomitant]
     Active Substance: NYSTATIN

REACTIONS (3)
  - Pyrexia [Recovered/Resolved]
  - Stomatitis [Recovered/Resolved]
  - Aplasia [Recovered/Resolved]
